FAERS Safety Report 5733418-5 (Version None)
Quarter: 2008Q2

REPORT INFORMATION
  Report Type: 
  Country: None (occurrence: None)
  Receive Date: 20080509
  Receipt Date: 20080428
  Transmission Date: 20081010
  Serious: Yes (Hospitalization)
  Sender: FDA-Public Use
  Company Number: DK-ROCHE-561630

PATIENT
  Sex: Female

DRUGS (4)
  1. CLONAZEPAM [Suspect]
     Indication: SCHIZOPHRENIA
     Route: 048
  2. AKINETON [Suspect]
     Indication: SCHIZOPHRENIA
     Route: 065
  3. NOZINAN [Suspect]
     Indication: SCHIZOPHRENIA
     Route: 065
  4. CLOZAPINE [Suspect]
     Indication: SCHIZOPHRENIA
     Route: 048

REACTIONS (2)
  - CONSTIPATION [None]
  - ILEUS [None]
